FAERS Safety Report 6016131-9 (Version None)
Quarter: 2008Q4

REPORT INFORMATION
  Report Type: 
  Country: None (occurrence: None)
  Receive Date: 20081222
  Receipt Date: 20081217
  Transmission Date: 20090506
  Serious: Yes (Other)
  Sender: FDA-Public Use
  Company Number: JP-WYE-H07340108

PATIENT
  Age: 80 Year
  Sex: Male

DRUGS (1)
  1. ARTANE [Suspect]
     Dosage: UNSPECIFIED
     Route: 048

REACTIONS (1)
  - DEMENTIA [None]
